FAERS Safety Report 7198394-X (Version None)
Quarter: 2010Q4

REPORT INFORMATION
  Report Type: 
  Country: None (occurrence: None)
  Receive Date: 20101227
  Receipt Date: 20101214
  Transmission Date: 20110411
  Serious: Yes (Hospitalization)
  Sender: FDA-Public Use
  Company Number: PHHY2010MX39168

PATIENT
  Age: 77 Year
  Sex: Female

DRUGS (8)
  1. ACLASTA [Suspect]
     Indication: OSTEOPOROSIS
     Dosage: 5 MG/YEAR
     Route: 042
     Dates: start: 20100104
  2. NEXIUM [Concomitant]
  3. PRAVASTATIN [Concomitant]
  4. LARGACTIL [Concomitant]
  5. ATIVAN [Concomitant]
  6. XELODA [Concomitant]
  7. CARBAMID [Concomitant]
  8. MELANIE D [Concomitant]

REACTIONS (9)
  - AMOEBIASIS [None]
  - BONE DENSITY DECREASED [None]
  - BURNING SENSATION [None]
  - COLON CANCER [None]
  - EXCORIATION [None]
  - HAEMATOCHEZIA [None]
  - LIMB DISCOMFORT [None]
  - MALIGNANT TUMOUR EXCISION [None]
  - MUCOUS STOOLS [None]
